FAERS Safety Report 5081518-8 (Version None)
Quarter: 2006Q3

REPORT INFORMATION
  Report Type: 
  Country: None (occurrence: None)
  Receive Date: 20060815
  Receipt Date: 20060815
  Transmission Date: 20061208
  Serious: Yes (Hospitalization)
  Sender: FDA-Public Use
  Company Number: None

PATIENT
  Age: 58 Year
  Sex: Male
  Weight: 65.5 kg

DRUGS (1)
  1. PREGABALIN [Suspect]
     Indication: NEURALGIA
     Dosage: 150 MG X 10 CAPS PO [ONCE]
     Route: 048

REACTIONS (10)
  - ACCIDENTAL OVERDOSE [None]
  - ALCOHOL POISONING [None]
  - ATRIAL FIBRILLATION [None]
  - CONFUSIONAL STATE [None]
  - DEPRESSED LEVEL OF CONSCIOUSNESS [None]
  - DYSARTHRIA [None]
  - SEDATION [None]
  - TREATMENT NONCOMPLIANCE [None]
  - TREMOR [None]
  - UNRESPONSIVE TO STIMULI [None]
